FAERS Safety Report 15489480 (Version 1)
Quarter: 2018Q4

REPORT INFORMATION
  Report Type: Spontaneous
  Country: US (occurrence: US)
  Receive Date: 20181004
  Receipt Date: 20181004
  Transmission Date: 20190205
  Serious: No
  Sender: FDA-Public Use
  Company Number: None

PATIENT
  Age: 70 Year
  Sex: Female

DRUGS (1)
  1. ENOXAPARIN SYR [Suspect]
     Active Substance: ENOXAPARIN SODIUM
     Indication: DEEP VEIN THROMBOSIS
     Route: 058
     Dates: start: 201809

REACTIONS (3)
  - Diarrhoea [None]
  - Feeling hot [None]
  - Hyperhidrosis [None]

NARRATIVE: CASE EVENT DATE: 20180912
